FAERS Safety Report 5301438-0 (Version None)
Quarter: 2007Q2

REPORT INFORMATION
  Report Type: 
  Country: None (occurrence: None)
  Receive Date: 20070412
  Receipt Date: 20070330
  Transmission Date: 20071010
  Serious: Yes (Hospitalization)
  Sender: FDA-Public Use
  Company Number: 238641

PATIENT
  Age: 80 Year
  Sex: Male
  Weight: 64.4 kg

DRUGS (16)
  1. AVASTIN [Suspect]
     Indication: COLORECTAL CANCER METASTATIC
     Dosage: 330 MG, QOW, INTRAVENOUS
     Route: 042
     Dates: start: 20061101
  2. CETUXIMAB(CETUXIMAB) [Suspect]
     Indication: COLORECTAL CANCER METASTATIC
     Dosage: 440 MG, 1/WEEK, INTRAVENOUS
     Route: 042
     Dates: start: 20061101
  3. FLUOROURACIL [Suspect]
     Indication: COLORECTAL CANCER METASTATIC
     Dosage: SEE IMAGE
     Route: 040
     Dates: start: 20061101
  4. FLUOROURACIL [Suspect]
     Indication: COLORECTAL CANCER METASTATIC
     Dosage: SEE IMAGE
     Route: 040
     Dates: start: 20061101
  5. LEUCOVORIN CALCIUM [Suspect]
     Indication: COLORECTAL CANCER METASTATIC
     Dosage: 704 MG, QOW, INTRAVENOUS
     Route: 042
     Dates: start: 20061101
  6. FOSAMAX [Concomitant]
  7. ZOCOR [Concomitant]
  8. ENALAPRIL MALEATE [Concomitant]
  9. AMARYL [Concomitant]
  10. TERAZOSIN HCL [Concomitant]
  11. FUROSEMIDE [Concomitant]
  12. TOPROL-XL [Concomitant]
  13. METFORMIN HCL [Concomitant]
  14. ASPIRIN [Concomitant]
  15. REQUIP [Concomitant]
  16. HUMULIN - REG (INSULIN HUMAN) [Concomitant]

REACTIONS (13)
  - ARTERIOSCLEROSIS [None]
  - ATELECTASIS [None]
  - CARDIAC FAILURE CONGESTIVE [None]
  - CARDIOMEGALY [None]
  - DIARRHOEA [None]
  - GENERALISED OEDEMA [None]
  - HAEMATOCRIT DECREASED [None]
  - LYMPHOCYTE COUNT DECREASED [None]
  - NAUSEA [None]
  - OEDEMA PERIPHERAL [None]
  - PLEURAL EFFUSION [None]
  - PULMONARY CONGESTION [None]
  - VOMITING [None]
